FAERS Safety Report 8386447-X (Version None)
Quarter: 2012Q2

REPORT INFORMATION
  Report Type: 
  Country: None (occurrence: None)
  Receive Date: 20120525
  Receipt Date: 20120522
  Transmission Date: 20120825
  Serious: Yes (Other)
  Sender: FDA-Public Use
  Company Number: US-PFIZER INC-2012124613

PATIENT
  Sex: Female

DRUGS (1)
  1. CHANTIX [Suspect]
     Dosage: UNK

REACTIONS (7)
  - MYALGIA [None]
  - MUSCLE TWITCHING [None]
  - LETHARGY [None]
  - ARTHRALGIA [None]
  - HEADACHE [None]
  - DYSKINESIA [None]
  - THIRST [None]
